FAERS Safety Report 4544771-2 (Version None)
Quarter: 2004Q4

REPORT INFORMATION
  Report Type: 
  Country: None (occurrence: None)
  Receive Date: 20041230
  Receipt Date: 20041214
  Transmission Date: 20050328
  Serious: Yes (Hospitalization)
  Sender: FDA-Public Use
  Company Number: 206427

PATIENT
  Age: 65 Year
  Sex: Female

DRUGS (3)
  1. AVONEX [Suspect]
     Indication: MULTIPLE SCLEROSIS
     Dosage: QW; IM
     Route: 030
     Dates: start: 19960101
  2. BETASERON [Concomitant]
  3. COPAXONE [Concomitant]

REACTIONS (4)
  - DRUG INTOLERANCE [None]
  - INJECTION SITE INFECTION [None]
  - INTERVERTEBRAL DISC OPERATION [None]
  - SURGICAL PROCEDURE REPEATED [None]
